FAERS Safety Report 4917865-7 (Version None)
Quarter: 2006Q1

REPORT INFORMATION
  Report Type: 
  Country: None (occurrence: None)
  Receive Date: 20060214
  Receipt Date: 20060203
  Transmission Date: 20060701
  Serious: Yes (Other)
  Sender: FDA-Public Use
  Company Number: 200610530GDS

PATIENT
  Age: 69 Year
  Sex: Female

DRUGS (5)
  1. CIPRO [Suspect]
     Dosage: 400 MG, BID, INTRAVENOUS
     Route: 042
  2. ANCEF [Concomitant]
  3. DIGOXIN [Concomitant]
  4. FERROUS SULFATE TAB [Concomitant]
  5. NOROXIN [Concomitant]

REACTIONS (9)
  - AUTOMATISM [None]
  - BLOOD CREATINE PHOSPHOKINASE INCREASED [None]
  - DYSKINESIA [None]
  - ECHOLALIA [None]
  - EXTENSOR PLANTAR RESPONSE [None]
  - HYPERREFLEXIA [None]
  - MUSCULOSKELETAL STIFFNESS [None]
  - RESTLESSNESS [None]
  - STUPOR [None]
